FAERS Safety Report 4463861-6 (Version None)
Quarter: 2004Q3

REPORT INFORMATION
  Report Type: 
  Country: None (occurrence: None)
  Receive Date: 20040929
  Receipt Date: 20040916
  Transmission Date: 20050211
  Serious: Yes (Hospitalization)
  Sender: FDA-Public Use
  Company Number: 2004067454

PATIENT
  Age: 37 Year
  Sex: Female

DRUGS (3)
  1. ZOLOFT [Suspect]
     Indication: DEPRESSION
     Dosage: ORAL
     Route: 048
     Dates: end: 20040401
  2. CYCLOSPORINE [Suspect]
     Indication: DERMATITIS ATOPIC
     Dosage: 150 MG (50 MG ), ORAL
     Route: 048
     Dates: start: 20000101, end: 20040416
  3. MIRTAZAPINE [Suspect]
     Indication: DEPRESSION
     Dates: end: 20040401

REACTIONS (4)
  - ABORTION MISSED [None]
  - DEPRESSION [None]
  - DRUG EXPOSURE DURING PREGNANCY [None]
  - PREGNANCY [None]
